FAERS Safety Report 23402751 (Version 1)
Quarter: 2024Q1

REPORT INFORMATION
  Report Type: Spontaneous
  Country: BG (occurrence: BG)
  Receive Date: 20240115
  Receipt Date: 20240115
  Transmission Date: 20240409
  Serious: Yes (Death, Other)
  Sender: FDA-Public Use
  Company Number: BG-009507513-2401BGR005257

PATIENT
  Age: 54 Year
  Sex: Male

DRUGS (1)
  1. RECARBRIO [Suspect]
     Active Substance: CILASTATIN\IMIPENEM ANHYDROUS\RELEBACTAM ANHYDROUS
     Indication: Pneumonia

REACTIONS (2)
  - Cardiac failure [Fatal]
  - Respiratory failure [Fatal]
